FAERS Safety Report 8609203-3 (Version None)
Quarter: 2012Q3

REPORT INFORMATION
  Report Type: 
  Country: None (occurrence: None)
  Receive Date: 20120821
  Receipt Date: 20120808
  Transmission Date: 20120928
  Serious: No
  Sender: FDA-Public Use
  Company Number: US-ASTRAZENECA-2012SE55972

PATIENT
  Sex: Female

DRUGS (1)
  1. SYMBICORT [Suspect]
     Route: 055

REACTIONS (8)
  - BURNING SENSATION [None]
  - PRURITUS [None]
  - SWELLING [None]
  - SKIN EXFOLIATION [None]
  - RASH GENERALISED [None]
  - DRY SKIN [None]
  - MALAISE [None]
  - POISONING [None]
